FAERS Safety Report 6807668-0 (Version None)
Quarter: 2010Q2

REPORT INFORMATION
  Report Type: 
  Country: None (occurrence: None)
  Receive Date: 20100629
  Receipt Date: 20091012
  Transmission Date: 20101027
  Serious: No
  Sender: FDA-Public Use
  Company Number: US-PFIZER INC-2008085105

PATIENT
  Sex: Female
  Weight: 58.97 kg

DRUGS (6)
  1. ALPRAZOLAM [Interacting]
     Indication: ANXIETY
     Dosage: 0.5 MG, 4X/DAY
     Route: 048
     Dates: start: 20080201
  2. KLONOPIN [Suspect]
     Indication: ANXIETY
     Dates: start: 20081001
  3. FEMHRT [Interacting]
     Indication: HORMONE REPLACEMENT THERAPY
     Dosage: [ETHINYL ESTRADIOL 1 MG]/[NORETHISTERONE ACETATE 5 MCG] ONCE A DAY
     Route: 048
     Dates: start: 20081008
  4. FEMHRT [Interacting]
     Indication: MENOPAUSE
  5. DEHYDROEPIANDROSTERONE [Interacting]
     Dosage: UNK
     Dates: start: 20090501
  6. PAXIL [Concomitant]
     Dosage: 10 MG, 1X/DAY
     Route: 048

REACTIONS (10)
  - ABDOMINAL PAIN UPPER [None]
  - DEPRESSION [None]
  - DIARRHOEA [None]
  - DRUG EFFECT INCREASED [None]
  - DRUG INTERACTION [None]
  - FATIGUE [None]
  - MALAISE [None]
  - NAUSEA [None]
  - PARADOXICAL DRUG REACTION [None]
  - SEDATION [None]
